FAERS Safety Report 14357623 (Version 3)
Quarter: 2018Q4

REPORT INFORMATION
  Report Type: Report from Study
  Country: US (occurrence: US)
  Receive Date: 20180105
  Receipt Date: 20181017
  Transmission Date: 20190204
  Serious: No
  Sender: FDA-Public Use
  Company Number: US-AMGEN-USASL2017186408

PATIENT
  Age: 55 Year
  Sex: Female

DRUGS (1)
  1. REPATHA [Suspect]
     Active Substance: EVOLOCUMAB
     Indication: TYPE IIA HYPERLIPIDAEMIA
     Dosage: 140 MG, Q2WK
     Route: 065
     Dates: start: 20171211, end: 201805

REACTIONS (21)
  - Pain in extremity [Recovering/Resolving]
  - Weight decreased [Unknown]
  - Discomfort [Unknown]
  - Dyspnoea exertional [Unknown]
  - Eye pruritus [Unknown]
  - Cough [Unknown]
  - Back pain [Recovered/Resolved]
  - Burning sensation [Unknown]
  - Oropharyngeal pain [Recovering/Resolving]
  - Respiratory tract congestion [Unknown]
  - Anxiety [Not Recovered/Not Resolved]
  - Depression [Not Recovered/Not Resolved]
  - Eye irritation [Unknown]
  - Lacrimation increased [Unknown]
  - Rhinorrhoea [Unknown]
  - Retching [Unknown]
  - Sinus pain [Recovered/Resolved]
  - Malaise [Unknown]
  - Chest discomfort [Unknown]
  - Asthenia [Unknown]
  - Decreased appetite [Unknown]

NARRATIVE: CASE EVENT DATE: 20171213
